FAERS Safety Report 15186056 (Version 1)
Quarter: 2018Q3

REPORT INFORMATION
  Report Type: Report from Study
  Country: US (occurrence: US)
  Receive Date: 20180723
  Receipt Date: 20180723
  Transmission Date: 20181010
  Serious: No
  Sender: FDA-Public Use
  Company Number: US-EXELIXIS-CABO-18013379

PATIENT
  Sex: Male
  Weight: 76.64 kg

DRUGS (2)
  1. IMODIUM A?D [Concomitant]
     Active Substance: LOPERAMIDE HYDROCHLORIDE
     Dosage: UNK
  2. CABOMETYX [Suspect]
     Active Substance: CABOZANTINIB S-MALATE
     Indication: RENAL CANCER
     Dosage: 40 MG DAILY FOR 6 DAYS, THEN 1 DAY OFF
     Dates: start: 2017

REACTIONS (1)
  - Diarrhoea [Recovering/Resolving]
